FAERS Safety Report 17192086 (Version 1)
Quarter: 2019Q4

REPORT INFORMATION
  Report Type: Report from Study
  Country: CA (occurrence: CA)
  Receive Date: 20191223
  Receipt Date: 20191223
  Transmission Date: 20200122
  Serious: Yes (Hospitalization, Other)
  Sender: FDA-Public Use
  Company Number: CA-PFIZER INC-2019547887

PATIENT
  Age: 55 Year
  Sex: Male
  Weight: 100 kg

DRUGS (10)
  1. SANDOSTATIN [Suspect]
     Active Substance: OCTREOTIDE ACETATE
     Dosage: 30 MG, MONTHLY
     Route: 030
  2. SANDOSTATIN [Suspect]
     Active Substance: OCTREOTIDE ACETATE
     Dosage: 30 MG (1 EVERY 4 WEEKS)
     Route: 030
  3. INSULIN [Concomitant]
     Active Substance: INSULIN NOS
     Dosage: UNK, 2X/DAY
     Route: 065
  4. AMLODIPINE BESILATE [Suspect]
     Active Substance: AMLODIPINE BESYLATE
     Indication: BLOOD PRESSURE ABNORMAL
     Dosage: 10 MG, 1X/DAY
     Route: 065
  5. ASA [Concomitant]
     Active Substance: ASPIRIN
     Dosage: 81 MG, 1X/DAY
     Route: 048
  6. LANTUS [Concomitant]
     Active Substance: INSULIN GLARGINE
     Dosage: UNK, 1X/DAY
     Route: 065
  7. SANDOSTATIN [Suspect]
     Active Substance: OCTREOTIDE ACETATE
     Dosage: 40 MG, MONTHLY
     Route: 030
  8. ALTACE [Concomitant]
     Active Substance: RAMIPRIL
     Dosage: UNK, 1X/DAY
     Route: 065
  9. SANDOSTATIN [Suspect]
     Active Substance: OCTREOTIDE ACETATE
     Indication: CARCINOID TUMOUR
     Dosage: 30 MG, MONTHLY
     Route: 030
  10. ROSUVASTATIN CALCIUM. [Concomitant]
     Active Substance: ROSUVASTATIN CALCIUM
     Dosage: UNK, 1X/DAY
     Route: 065

REACTIONS (27)
  - Blood pressure increased [Recovered/Resolved]
  - Blood pressure systolic increased [Recovered/Resolved]
  - Blood glucose decreased [Recovered/Resolved]
  - Malaise [Recovered/Resolved]
  - Tremor [Recovered/Resolved]
  - Hepatic neoplasm [Recovered/Resolved]
  - Bile duct obstruction [Recovered/Resolved]
  - Chills [Recovered/Resolved]
  - Yellow skin [Recovered/Resolved]
  - Blood pressure diastolic decreased [Recovered/Resolved]
  - Bronchitis [Recovered/Resolved]
  - Heart rate decreased [Recovered/Resolved]
  - Decreased appetite [Recovered/Resolved]
  - Needle issue [Recovered/Resolved]
  - Jaundice [Recovered/Resolved]
  - Body temperature decreased [Recovered/Resolved]
  - Nausea [Recovered/Resolved]
  - Weight decreased [Recovered/Resolved]
  - Diabetes mellitus [Recovered/Resolved]
  - Blood pressure fluctuation [Recovered/Resolved]
  - Orthostatic hypotension [Recovered/Resolved]
  - Device occlusion [Recovered/Resolved]
  - Post procedural complication [Recovered/Resolved]
  - Ocular icterus [Recovered/Resolved]
  - Discomfort [Recovered/Resolved]
  - Incorrect dose administered [Recovered/Resolved]
  - Pain [Recovered/Resolved]
